FAERS Safety Report 14213550 (Version 21)
Quarter: 2019Q2

REPORT INFORMATION
  Report Type: Report from Study
  Country: None (occurrence: IE)
  Receive Date: 20171122
  Receipt Date: 20190403
  Transmission Date: 20190711
  Serious: Yes (Hospitalization, Other)
  Sender: FDA-Public Use
  Company Number: IE-ABBVIE-17P-229-1940125-00

PATIENT
  Age: 51 Year
  Sex: Female

DRUGS (25)
  1. DUODOPA [Suspect]
     Active Substance: CARBIDOPA\LEVODOPA
     Indication: PARKINSON^S DISEASE
     Dosage: 1 CASSETTE, CONTINUOUS
     Route: 050
     Dates: start: 20160120, end: 20160126
  2. DUODOPA [Suspect]
     Active Substance: CARBIDOPA\LEVODOPA
     Dosage: CD RATE: 2.2ML/HR; CONTINUOUS
     Route: 050
     Dates: start: 20170331, end: 20170403
  3. DUODOPA [Suspect]
     Active Substance: CARBIDOPA\LEVODOPA
     Dosage: CD: 2.1ML/HR; ED: 1.2ML
     Route: 050
     Dates: start: 20170824, end: 20170825
  4. DUODOPA [Suspect]
     Active Substance: CARBIDOPA\LEVODOPA
     Dosage: CD: 1.7ML/HR, MD: 5.2ML
     Route: 050
     Dates: start: 20171120, end: 20180117
  5. RIVOTRIL [Concomitant]
     Active Substance: CLONAZEPAM
     Dosage: NIGHT
     Route: 048
  6. OMEGA 3 FISH OIL [Concomitant]
     Active Substance: FISH OIL\OMEGA-3 FATTY ACIDS
     Indication: PRODUCT USED FOR UNKNOWN INDICATION
  7. SYMMETREL [Concomitant]
     Active Substance: AMANTADINE HYDROCHLORIDE
     Indication: PRODUCT USED FOR UNKNOWN INDICATION
     Route: 048
  8. DUODOPA [Suspect]
     Active Substance: CARBIDOPA\LEVODOPA
     Dosage: CD: 2.3ML/HR; ED: 1.2ML
     Route: 050
     Dates: start: 20170403, end: 20170824
  9. SINEMET CR [Concomitant]
     Active Substance: CARBIDOPA\LEVODOPA
     Indication: PRODUCT USED FOR UNKNOWN INDICATION
     Dosage: CR:200/50MG NIGHT(HALF A TABLET IN MORNING AND LATE AFTERNOON)
     Route: 048
  10. SINEMET CR [Concomitant]
     Active Substance: CARBIDOPA\LEVODOPA
     Dosage: HALF SINEMET
  11. DUODOPA [Suspect]
     Active Substance: CARBIDOPA\LEVODOPA
     Dosage: 1 CASSETTE, CONTINUOUS
     Route: 050
     Dates: start: 20160126, end: 20170331
  12. DUODOPA [Suspect]
     Active Substance: CARBIDOPA\LEVODOPA
     Dosage: CD INCREASED TO 1.6MLS/HOUR
     Route: 050
     Dates: start: 20181114, end: 2018
  13. RIVOTRIL [Concomitant]
     Active Substance: CLONAZEPAM
     Dosage: MORNING
     Route: 048
  14. QUETIAPINE. [Concomitant]
     Active Substance: QUETIAPINE
     Indication: PRODUCT USED FOR UNKNOWN INDICATION
     Route: 048
     Dates: start: 2018
  15. DUODOPA [Suspect]
     Active Substance: CARBIDOPA\LEVODOPA
     Dosage: MD: 5.2MLS, CD: 1.6ML/HR
     Route: 050
     Dates: start: 20171117, end: 20171120
  16. DUODOPA [Suspect]
     Active Substance: CARBIDOPA\LEVODOPA
     Route: 050
  17. DUODOPA [Suspect]
     Active Substance: CARBIDOPA\LEVODOPA
     Dosage: CD: 1.5ML/HR
     Route: 050
     Dates: start: 20180427
  18. DUODOPA [Suspect]
     Active Substance: CARBIDOPA\LEVODOPA
     Dosage: CD 1.5MLS/HOUR
     Route: 050
     Dates: start: 20181114
  19. DUODOPA [Suspect]
     Active Substance: CARBIDOPA\LEVODOPA
     Dosage: 1 CASSETTE. CD : 2.3 MLS/HR AND ED : 1.3 MLS (AS REQUIRED), CONTINUOUS
     Route: 050
     Dates: start: 20181129
  20. DUODOPA [Suspect]
     Active Substance: CARBIDOPA\LEVODOPA
     Dosage: CD: 2.1ML/HR; ED: 1.1ML MD: 4.6ML
     Route: 050
     Dates: start: 20170825, end: 20170905
  21. DUODOPA [Suspect]
     Active Substance: CARBIDOPA\LEVODOPA
     Dosage: CD: 1.9ML/HR, MD: 4.2MLS
     Route: 050
     Dates: start: 20170905, end: 20171117
  22. DUODOPA [Suspect]
     Active Substance: CARBIDOPA\LEVODOPA
     Dosage: CD: 1.9ML/HR
     Route: 050
     Dates: start: 20180117, end: 20180425
  23. DUODOPA [Suspect]
     Active Substance: CARBIDOPA\LEVODOPA
     Dosage: CONTINUOUS DOSE INCREASED
     Route: 050
  24. RIVOTRIL [Concomitant]
     Active Substance: CLONAZEPAM
     Dosage: MORNING
     Route: 048
  25. RIVOTRIL [Concomitant]
     Active Substance: CLONAZEPAM
     Indication: PRODUCT USED FOR UNKNOWN INDICATION
     Dosage: NIGHT EXTRA
     Route: 048

REACTIONS (23)
  - Faecaloma [Recovered/Resolved]
  - Paranoia [Recovering/Resolving]
  - Mobility decreased [Recovering/Resolving]
  - Fear [Recovered/Resolved]
  - Therapeutic response shortened [Recovered/Resolved]
  - Confusional state [Recovering/Resolving]
  - Agitation [Recovering/Resolving]
  - Panic attack [Recovered/Resolved]
  - Anxiety [Recovered/Resolved]
  - Paranoia [Recovered/Resolved]
  - Treatment noncompliance [Recovering/Resolving]
  - Hallucination [Recovering/Resolving]
  - Intentional self-injury [Recovered/Resolved]
  - On and off phenomenon [Recovered/Resolved]
  - Anxiety [Recovering/Resolving]
  - Memory impairment [Recovering/Resolving]
  - Delusion [Recovering/Resolving]
  - Dyskinesia [Recovered/Resolved]
  - Bradykinesia [Recovering/Resolving]
  - Psychotic disorder [Recovering/Resolving]
  - Cognitive disorder [Recovering/Resolving]
  - Anxiety [Recovered/Resolved]
  - Hallucination [Recovered/Resolved]

NARRATIVE: CASE EVENT DATE: 20170329
